FAERS Safety Report 7527916-1 (Version None)
Quarter: 2011Q2

REPORT INFORMATION
  Report Type: 
  Country: None (occurrence: None)
  Receive Date: 20110531
  Receipt Date: 20110520
  Transmission Date: 20111010
  Serious: Yes (Hospitalization)
  Sender: FDA-Public Use
  Company Number: MC201100241

PATIENT
  Age: 81 Year
  Sex: Female

DRUGS (12)
  1. DEXERYL (GLYCEROL, PARAFFIN, LIQUID, WHITE SOFT PARAFFIN) CREAM [Concomitant]
  2. MUPIDERM (MUPIROCIN) OINTMENT, CREAM, 2% [Concomitant]
  3. NITROGLYCERIN SPRAY [Concomitant]
  4. ANGIOMAX [Suspect]
     Indication: ANGIOPLASTY
     Dosage: 10.5 ML, BOLUS, INTRAVENOUS; 24.5 ML, INTRAVENOUS
     Route: 040
     Dates: start: 20110501
  5. ANGIOMAX [Suspect]
     Indication: ANGIOPLASTY
     Dosage: 10.5 ML, BOLUS, INTRAVENOUS; 24.5 ML, INTRAVENOUS
     Route: 040
     Dates: start: 20110501
  6. GINKOR FORT (GINKGO BILOBA, HEPATMINOL HYDROCHLORIDE, TROXERUTIN) CAPS [Concomitant]
  7. MORPHINE [Concomitant]
  8. FIXICAL (CALCIUM CARBONATE) [Concomitant]
  9. ASPEGIC (ACETYLSALICYLATE LYSINE, AMINOACETIC ACID) [Concomitant]
  10. EFFERAGLAN (PARACETAMOL) [Concomitant]
  11. SPIRONOLACTONE [Concomitant]
  12. KARDEGIC (ACETYLSALICYLATE LYSINE, ACETYLSALICYLIC ACID) [Concomitant]

REACTIONS (3)
  - ACTIVATED PARTIAL THROMBOPLASTIN TIME PROLONGED [None]
  - COAGULATION FACTOR V LEVEL DECREASED [None]
  - PROTHROMBIN TIME SHORTENED [None]
